FAERS Safety Report 6274871-0 (Version None)
Quarter: 2009Q3

REPORT INFORMATION
  Report Type: 
  Country: None (occurrence: None)
  Receive Date: 20090721
  Receipt Date: 20090716
  Transmission Date: 20100115
  Serious: Yes (Hospitalization, Other)
  Sender: FDA-Public Use
  Company Number: FR-BRISTOL-MYERS SQUIBB COMPANY-14706014

PATIENT
  Age: 82 Year
  Sex: Female

DRUGS (7)
  1. APROVEL TABS 150 MG [Suspect]
     Route: 048
     Dates: end: 20090602
  2. METFORMIN HCL [Suspect]
     Dosage: 1 DF = 2 INTAKES
     Route: 048
     Dates: end: 20090602
  3. VOLTAREN [Suspect]
     Indication: ARTHRALGIA
     Dosage: 2 TABLETS DAILY
     Route: 048
     Dates: start: 20090529, end: 20090602
  4. DIAMICRON [Suspect]
     Dosage: 3 TABLETS
     Dates: end: 20090602
  5. ANTIDIABETIC PRODUCT [Concomitant]
     Route: 048
  6. LASIX [Concomitant]
  7. SOTALOL [Concomitant]

REACTIONS (2)
  - HYPOGLYCAEMIA [None]
  - RENAL FAILURE ACUTE [None]
